FAERS Safety Report 4579284-5 (Version None)
Quarter: 2005Q1

REPORT INFORMATION
  Report Type: 
  Country: None (occurrence: None)
  Receive Date: 20050209
  Receipt Date: 20050204
  Transmission Date: 20050727
  Serious: Yes (Life-Threatening)
  Sender: FDA-Public Use
  Company Number: 2005AC00224

PATIENT
  Age: 74 Year
  Sex: Male

DRUGS (11)
  1. CASODEX [Suspect]
     Dosage: 50 MG DAILY PO
     Route: 048
     Dates: start: 20050121
  2. HYDROXYZINI HCL [Concomitant]
  3. CRESTOR [Concomitant]
  4. ACIDUM ACETYLSALICYLICUM [Concomitant]
  5. ATACAND [Concomitant]
  6. ADALAT [Concomitant]
  7. NEXIUM [Concomitant]
  8. METOPROLOL TARTRAS RETARD [Concomitant]
  9. SELOKEEN ZOC [Concomitant]
  10. COLCHICINUM [Concomitant]
  11. RAMIPRIL [Concomitant]

REACTIONS (1)
  - BREAST CANCER MALE [None]
